FAERS Safety Report 13430172 (Version 1)
Quarter: 2017Q2

REPORT INFORMATION
  Report Type: Spontaneous
  Country: GB (occurrence: GB)
  Receive Date: 20170412
  Receipt Date: 20170412
  Transmission Date: 20170830
  Serious: Yes (Hospitalization)
  Sender: FDA-Public Use
  Company Number: GB-ACCORD-049970

PATIENT
  Age: 84 Year
  Sex: Male
  Weight: 96 kg

DRUGS (5)
  1. ATGAM [Suspect]
     Active Substance: EQUINE THYMOCYTE IMMUNE GLOBULIN
     Indication: APLASTIC ANAEMIA
     Dosage: DAILY DOSE: 3934 MG MILLGRAM(S) EVERY DAYS.
     Route: 042
     Dates: start: 20160908
  2. ACICLOVIR [Concomitant]
     Active Substance: ACYCLOVIR
     Indication: ANTIVIRAL PROPHYLAXIS
     Dosage: DAILY DOSE: 800 MG MILLGRAM(S) EVERY DAYS.
     Route: 048
     Dates: start: 20160908
  3. DEXIMUNE [Suspect]
     Active Substance: CYCLOSPORINE
     Indication: APLASTIC ANAEMIA
     Dosage: DAILY DOSE: 400 MG MILLGRAM(S) EVERY DAYS.
     Route: 048
     Dates: start: 20160908, end: 20161223
  4. RAMIPRIL. [Suspect]
     Active Substance: RAMIPRIL
     Indication: HYPERTENSION
     Dosage: DAILY DOSE: 125 MG MILLGRAM(S) EVERY DAYS.
     Route: 048
     Dates: start: 20160919, end: 20161223
  5. EXJADE [Concomitant]
     Active Substance: DEFERASIROX
     Indication: SERUM FERRITIN INCREASED
     Dosage: DAILY DOSE: 500 MG MILLGRAM(S) EVERY DAYS.
     Route: 048
     Dates: start: 20161123, end: 20161223

REACTIONS (2)
  - Hypophosphataemia [Unknown]
  - Acute kidney injury [Recovered/Resolved]

NARRATIVE: CASE EVENT DATE: 20161223
